FAERS Safety Report 9933704 (Version 2)
Quarter: 2014Q1

REPORT INFORMATION
  Report Type: Report from Study
  Country: US (occurrence: US)
  Receive Date: 20140228
  Receipt Date: 20140228
  Transmission Date: 20141002
  Serious: No
  Sender: FDA-Public Use
  Company Number: US-MYLANLABS-2013S1010986

PATIENT
  Sex: Female

DRUGS (6)
  1. AMNESTEEM CAPSULES [Suspect]
     Indication: ACNE
     Route: 048
  2. MYORISAN [Suspect]
  3. PLAQUENIL [Concomitant]
  4. SYNTHROID [Concomitant]
  5. DEPOPROVERA [Concomitant]
  6. RESTASIS [Concomitant]

REACTIONS (5)
  - Dry skin [Recovered/Resolved]
  - Lip dry [Recovered/Resolved]
  - Skin irritation [Recovered/Resolved]
  - Burning sensation [Recovered/Resolved]
  - Erythema [Recovered/Resolved]
